FAERS Safety Report 11608136 (Version 1)
Quarter: 2015Q4

REPORT INFORMATION
  Report Type: Spontaneous
  Country: FR (occurrence: FR)
  Receive Date: 20151007
  Receipt Date: 20151007
  Transmission Date: 20160304
  Serious: Yes (Death, Life-Threatening, Hospitalization, Other)
  Sender: FDA-Public Use
  Company Number: FR-ELI_LILLY_AND_COMPANY-FR201509009725

PATIENT
  Age: 71 Year
  Sex: Male

DRUGS (13)
  1. RENVELA [Concomitant]
     Active Substance: SEVELAMER CARBONATE
     Dosage: UNK, UNKNOWN
  2. EUPANTOL [Concomitant]
     Active Substance: PANTOPRAZOLE SODIUM
     Dosage: UNK, UNKNOWN
  3. EZETROL [Concomitant]
     Active Substance: EZETIMIBE
     Dosage: 10 MG, UNKNOWN
  4. ACUPAN [Concomitant]
     Active Substance: NEFOPAM HYDROCHLORIDE
     Dosage: UNK, UNKNOWN
     Route: 048
  5. KARDEGIC [Concomitant]
     Active Substance: ASPIRIN LYSINE
     Dosage: 75 MG, UNKNOWN
  6. ALIMTA [Suspect]
     Active Substance: PEMETREXED DISODIUM
     Indication: EPITHELIOID MESOTHELIOMA
     Dosage: UNK, CYCLICAL
     Route: 042
     Dates: start: 20150810, end: 20150810
  7. MIMPARA [Concomitant]
     Active Substance: CINACALCET HYDROCHLORIDE
     Dosage: UNK, UNKNOWN
  8. BISOCE [Concomitant]
     Active Substance: BISOPROLOL
     Dosage: 5 MG, UNKNOWN
  9. CARBOPLATIN ACCORD [Suspect]
     Active Substance: CARBOPLATIN
     Indication: EPITHELIOID MESOTHELIOMA
     Dosage: 125 MG, CYCLICAL
     Route: 042
     Dates: start: 20150810, end: 20150810
  10. INSULIN [Concomitant]
     Active Substance: INSULIN NOS
     Dosage: UNK, UNKNOWN
  11. PLAVIX [Concomitant]
     Active Substance: CLOPIDOGREL BISULFATE
     Dosage: UNK, UNKNOWN
  12. KAYEXALATE [Concomitant]
     Active Substance: SODIUM POLYSTYRENE SULFONATE
     Dosage: UNK, UNKNOWN
  13. IKOREL [Concomitant]
     Active Substance: NICORANDIL
     Dosage: 10 MG, UNKNOWN

REACTIONS (10)
  - Blood urea increased [Unknown]
  - Haemoglobin decreased [Unknown]
  - Pyrexia [Unknown]
  - Blood creatinine increased [Unknown]
  - Face oedema [Unknown]
  - Off label use [Unknown]
  - Pancytopenia [Fatal]
  - Cardiopulmonary failure [Unknown]
  - Diabetes mellitus inadequate control [Unknown]
  - Rash pruritic [Unknown]

NARRATIVE: CASE EVENT DATE: 20150810
